FAERS Safety Report 13327256 (Version 1)
Quarter: 2017Q1

REPORT INFORMATION
  Report Type: Spontaneous
  Country: US (occurrence: US)
  Receive Date: 20170313
  Receipt Date: 20170313
  Transmission Date: 20170428
  Serious: No
  Sender: FDA-Public Use
  Company Number: US-JNJFOC-20161211946

PATIENT
  Age: 67 Year
  Sex: Female
  Weight: 48.99 kg

DRUGS (2)
  1. WOMENS ROGAINE UNSCENTED [Suspect]
     Active Substance: MINOXIDIL
     Indication: PRODUCT USED FOR UNKNOWN INDICATION
     Dosage: 1/2 CAPFULL
     Route: 061
     Dates: start: 20161208, end: 20161211
  2. WOMENS ROGAINE UNSCENTED [Suspect]
     Active Substance: MINOXIDIL
     Route: 061

REACTIONS (3)
  - Product closure removal difficult [Unknown]
  - Hair texture abnormal [Unknown]
  - Product formulation issue [Unknown]

NARRATIVE: CASE EVENT DATE: 20161208
